FAERS Safety Report 9520279 (Version 2)
Quarter: 2013Q4

REPORT INFORMATION
  Report Type: Spontaneous
  Country: JP (occurrence: JP)
  Receive Date: 20130912
  Receipt Date: 20131008
  Transmission Date: 20140711
  Serious: Yes (Hospitalization)
  Sender: FDA-Public Use
  Company Number: JP-B.I. PHARMACEUTICALS,INC./RIDGEFIELD-2013-BI-28507NB

PATIENT
  Age: 84 Year
  Sex: Female

DRUGS (3)
  1. PRAZAXA [Suspect]
     Dosage: 220 MG
     Route: 065
     Dates: start: 201110, end: 20121026
  2. PRAZAXA [Suspect]
     Dosage: 220 MG
     Route: 065
     Dates: start: 20121031
  3. XARELTO [Suspect]
     Route: 048
     Dates: start: 20121027, end: 20121030

REACTIONS (1)
  - Interstitial lung disease [Not Recovered/Not Resolved]
